FAERS Safety Report 24959616 (Version 4)
Quarter: 2025Q1

REPORT INFORMATION
  Report Type: Report from Study
  Country: BR (occurrence: BR)
  Receive Date: 20250212
  Receipt Date: 20250321
  Transmission Date: 20250409
  Serious: Yes (Other)
  Sender: NOVARTIS
  Company Number: BR-002147023-NVSC2023BR255971

PATIENT
  Age: 73 Year
  Sex: Female
  Weight: 75 kg

DRUGS (6)
  1. KISQALI [Suspect]
     Active Substance: RIBOCICLIB
     Indication: Breast neoplasm
     Dosage: 3 DOSAGE FORM, QD
     Route: 065
  2. KISQALI [Suspect]
     Active Substance: RIBOCICLIB
     Route: 065
     Dates: end: 20250307
  3. LETROZOLE [Suspect]
     Active Substance: LETROZOLE
     Indication: Lung neoplasm malignant
     Dosage: 1 DOSAGE FORM, QD
     Route: 065
  4. LETROZOLE [Suspect]
     Active Substance: LETROZOLE
     Indication: Bone cancer
     Route: 065
     Dates: end: 20250307
  5. CAPTOPRIL [Concomitant]
     Active Substance: CAPTOPRIL
     Indication: Hypertension
     Route: 065
  6. HYDROCHLOROTHIAZIDE [Concomitant]
     Active Substance: HYDROCHLOROTHIAZIDE
     Indication: Hypertension
     Route: 065

REACTIONS (19)
  - Impaired gastric emptying [Recovered/Resolved]
  - Hypersensitivity [Recovering/Resolving]
  - Pruritus [Not Recovered/Not Resolved]
  - Burning sensation [Recovering/Resolving]
  - Breast mass [Recovering/Resolving]
  - Pulmonary mass [Unknown]
  - Scratch [Recovered/Resolved with Sequelae]
  - Scratch [Recovered/Resolved with Sequelae]
  - Skin haemorrhage [Recovered/Resolved with Sequelae]
  - Skin discolouration [Recovered/Resolved with Sequelae]
  - Skin discolouration [Recovered/Resolved with Sequelae]
  - Decreased immune responsiveness [Recovered/Resolved]
  - Weight decreased [Recovered/Resolved]
  - Dyspepsia [Recovered/Resolved]
  - Benign breast neoplasm [Not Recovered/Not Resolved]
  - Abdominal pain upper [Recovered/Resolved]
  - Decreased immune responsiveness [Unknown]
  - White blood cell count decreased [Recovering/Resolving]
  - Asthenia [Unknown]

NARRATIVE: CASE EVENT DATE: 20231201
